FAERS Safety Report 13382135 (Version 1)
Quarter: 2017Q1

REPORT INFORMATION
  Report Type: Spontaneous
  Country: ES (occurrence: ES)
  Receive Date: 20170329
  Receipt Date: 20170329
  Transmission Date: 20170429
  Serious: Yes (Other)
  Sender: FDA-Public Use
  Company Number: ES-OCTA-GAM07217ES

PATIENT
  Age: 62 Year
  Sex: Male

DRUGS (2)
  1. ELTROMBOPAG [Concomitant]
     Active Substance: ELTROMBOPAG
     Indication: ATRIAL FIBRILLATION
  2. OCTAGAMOCTA [Suspect]
     Active Substance: HUMAN IMMUNOGLOBULIN G
     Indication: IMMUNE THROMBOCYTOPENIC PURPURA
     Route: 042
     Dates: start: 20160804

REACTIONS (3)
  - Hepatitis B surface antibody positive [Not Recovered/Not Resolved]
  - Hepatitis B surface antigen negative [Not Recovered/Not Resolved]
  - Hepatitis B core antibody positive [Not Recovered/Not Resolved]

NARRATIVE: CASE EVENT DATE: 20160906
